FAERS Safety Report 16194565 (Version 5)
Quarter: 2019Q3

REPORT INFORMATION
  Report Type: Spontaneous
  Country: JP (occurrence: JP)
  Receive Date: 20190414
  Receipt Date: 20190821
  Transmission Date: 20191004
  Serious: Yes (Other)
  Sender: FDA-Public Use
  Company Number: PHJP2019JP004374

PATIENT
  Age: 55 Year
  Sex: Female
  Weight: 73 kg

DRUGS (20)
  1. SPIRONOLACTONE. [Suspect]
     Active Substance: SPIRONOLACTONE
     Indication: HYPERTENSION
     Dosage: 50 MG, BID
     Route: 048
     Dates: start: 201103
  2. SPIRONOLACTONE. [Suspect]
     Active Substance: SPIRONOLACTONE
     Dosage: 50 MG, QD
     Route: 048
  3. K-SUPPLY [Suspect]
     Active Substance: POTASSIUM CHLORIDE
     Indication: HYPOKALAEMIA
     Dosage: 180 MG, BID
     Route: 048
     Dates: start: 20120315
  4. OLMETEC [Suspect]
     Active Substance: OLMESARTAN MEDOXOMIL
     Dosage: 20 MG, QD
     Route: 048
     Dates: start: 20190108
  5. K-SUPPLY [Suspect]
     Active Substance: POTASSIUM CHLORIDE
     Dosage: UNK
     Route: 048
  6. SIGNIFOR LAR [Suspect]
     Active Substance: PASIREOTIDE
     Indication: PITUITARY-DEPENDENT CUSHING^S SYNDROME
     Dosage: 10 MG, QMO
     Route: 030
     Dates: start: 20180905, end: 20190108
  7. PRAVASTATIN SODIUM. [Concomitant]
     Active Substance: PRAVASTATIN SODIUM
     Indication: HYPERLIPIDAEMIA
     Dosage: 10 MG, QD
     Route: 048
     Dates: start: 201103
  8. SIGNIFOR LAR [Suspect]
     Active Substance: PASIREOTIDE
     Dosage: UNK
     Route: 065
  9. OLMETEC [Suspect]
     Active Substance: OLMESARTAN MEDOXOMIL
     Indication: HYPERTENSION
     Dosage: 40 MG, QD
     Route: 048
     Dates: start: 20140912
  10. METFORMIN HYDROCHLORIDE. [Concomitant]
     Active Substance: METFORMIN HYDROCHLORIDE
     Dosage: 1000 MG, QD
     Route: 065
     Dates: start: 20190205, end: 20190506
  11. METFORMIN HYDROCHLORIDE. [Concomitant]
     Active Substance: METFORMIN HYDROCHLORIDE
     Dosage: 1500 MG, QD
     Route: 065
     Dates: start: 20190507
  12. SIGNIFOR LAR [Suspect]
     Active Substance: PASIREOTIDE
     Dosage: 20 MG, QMO
     Route: 030
     Dates: start: 20190205, end: 20190405
  13. METYRAPONE [Suspect]
     Active Substance: METYRAPONE
     Indication: PITUITARY-DEPENDENT CUSHING^S SYNDROME
     Dosage: 750 MG, QID
     Route: 065
     Dates: start: 20180905
  14. METFORMIN HYDROCHLORIDE. [Concomitant]
     Active Substance: METFORMIN HYDROCHLORIDE
     Indication: DIABETES MELLITUS
     Dosage: 500 MG, QD
     Route: 065
     Dates: start: 20190108, end: 20190204
  15. ATELEC [Concomitant]
     Active Substance: CILNIDIPINE
     Indication: HYPERTENSION
     Dosage: 20 MG, QD
     Route: 048
     Dates: start: 20180329
  16. SIGNIFOR LAR [Suspect]
     Active Substance: PASIREOTIDE
     Dosage: 30 MG, QMO
     Route: 030
     Dates: start: 20190507, end: 20190604
  17. METFORMIN HYDROCHLORIDE. [Concomitant]
     Active Substance: METFORMIN HYDROCHLORIDE
     Dosage: 250 MG, BID
     Route: 048
     Dates: end: 20190806
  18. NEXIUM [Concomitant]
     Active Substance: ESOMEPRAZOLE MAGNESIUM
     Indication: GASTROOESOPHAGEAL REFLUX DISEASE
     Dosage: 20 MG, QD
     Route: 048
     Dates: start: 20160826
  19. FERROUS FUMARATE [Concomitant]
     Active Substance: FERROUS FUMARATE
     Indication: IRON DEFICIENCY ANAEMIA
     Dosage: 100 MG, QD
     Route: 048
     Dates: start: 20150814, end: 20190108
  20. BONALON [Concomitant]
     Active Substance: ALENDRONATE SODIUM
     Indication: OSTEOPOROSIS
     Dosage: 35 MG, QW
     Route: 048
     Dates: start: 20120406

REACTIONS (11)
  - Blood potassium decreased [Unknown]
  - Blood potassium increased [Unknown]
  - Hyperkalaemia [Recovered/Resolved]
  - Cortisol free urine increased [Unknown]
  - Diabetes mellitus [Not Recovered/Not Resolved]
  - Hyperglycaemia [Not Recovered/Not Resolved]
  - Increased appetite [Unknown]
  - Hyperphagia [Unknown]
  - Glucose tolerance impaired [Unknown]
  - Diabetes mellitus inadequate control [Not Recovered/Not Resolved]
  - Weight increased [Unknown]

NARRATIVE: CASE EVENT DATE: 20181204
